FAERS Safety Report 15719944 (Version 2)
Quarter: 2018Q4

REPORT INFORMATION
  Report Type: Spontaneous
  Country: BE (occurrence: BE)
  Receive Date: 20181213
  Receipt Date: 20181220
  Transmission Date: 20190205
  Serious: Yes (Life-Threatening, Hospitalization)
  Sender: FDA-Public Use
  Company Number: BE-PFIZER INC-2018511424

PATIENT
  Age: 94 Year
  Sex: Female
  Weight: 65 kg

DRUGS (5)
  1. INEGY [Interacting]
     Active Substance: EZETIMIBE\SIMVASTATIN
     Indication: DYSLIPIDAEMIA
     Dosage: 1X/DAY (10 MG / 80 MG EZETIMIBE/SIMVASTATIN)
     Route: 048
     Dates: start: 2014, end: 20181207
  2. CO VALSARTAN [VALSARTAN] [Concomitant]
     Dosage: 1X/DAY (160/25 MG)
     Route: 048
     Dates: start: 2011, end: 20181203
  3. IBRANCE [Suspect]
     Active Substance: PALBOCICLIB
     Indication: BREAST CANCER METASTATIC
     Dosage: 125 MG, 1X/DAY (3 WEEKS ON, ONE WEEK OFF)
     Route: 048
     Dates: start: 20181113, end: 20181203
  4. ASAFLOW [Concomitant]
     Active Substance: ASPIRIN
     Indication: ARTERIOSCLEROSIS
     Dosage: 80 MG, 1X/DAY
     Dates: start: 2008
  5. OMEPRAZOLE. [Concomitant]
     Active Substance: OMEPRAZOLE
     Indication: GASTROOESOPHAGEAL REFLUX DISEASE
     Dosage: 20 MG, 1X/DAY
     Route: 048
     Dates: start: 2010

REACTIONS (2)
  - Rhabdomyolysis [Recovering/Resolving]
  - Drug interaction [Recovering/Resolving]

NARRATIVE: CASE EVENT DATE: 20181113
